FAERS Safety Report 6377738-2 (Version None)
Quarter: 2009Q3

REPORT INFORMATION
  Report Type: 
  Country: None (occurrence: None)
  Receive Date: 20090925
  Receipt Date: 20090921
  Transmission Date: 20100115
  Serious: Yes (Other)
  Sender: FDA-Public Use
  Company Number: GB-JNJFOC-20090906426

PATIENT
  Age: 73 Year
  Sex: Male

DRUGS (3)
  1. ITRACONAZOLE [Suspect]
     Indication: DRUG USE FOR UNKNOWN INDICATION
     Route: 048
     Dates: start: 20061001
  2. RIFABUTIN [Interacting]
     Indication: DRUG USE FOR UNKNOWN INDICATION
     Route: 065
     Dates: start: 20061101
  3. CLARITHROMYCIN [Concomitant]
     Indication: DRUG USE FOR UNKNOWN INDICATION
     Route: 065
     Dates: start: 20061101

REACTIONS (3)
  - DRUG INTERACTION [None]
  - ENDOPHTHALMITIS [None]
  - UVEITIS [None]
